FAERS Safety Report 10758869 (Version 3)
Quarter: 2015Q4

REPORT INFORMATION
  Report Type: Spontaneous
  Country: US (occurrence: US)
  Receive Date: 20150203
  Receipt Date: 20151023
  Transmission Date: 20160304
  Serious: Yes (Hospitalization, Other)
  Sender: FDA-Public Use
  Company Number: US-BAYER-2015-016146

PATIENT
  Age: 23 Year
  Sex: Female
  Weight: 92.97 kg

DRUGS (3)
  1. ORTHO TRI CYCLEN LO [Concomitant]
     Active Substance: ETHINYL ESTRADIOL\NORGESTIMATE
  2. MIRENA [Suspect]
     Active Substance: LEVONORGESTREL
     Indication: CONTRACEPTION
     Dosage: 20 MCG/24HR, CONT
     Route: 015
     Dates: start: 20071217, end: 20091123
  3. DMPA [Concomitant]

REACTIONS (14)
  - Uterine perforation [None]
  - Emotional distress [None]
  - Abdominal pain [None]
  - Fear [None]
  - Injury [None]
  - Medical device discomfort [None]
  - Device use error [None]
  - Internal injury [None]
  - Genital haemorrhage [None]
  - Device defective [None]
  - Depression [None]
  - Pelvic pain [None]
  - Anxiety [None]
  - Depressed mood [None]

NARRATIVE: CASE EVENT DATE: 200712
